FAERS Safety Report 6122010-9 (Version None)
Quarter: 2009Q1

REPORT INFORMATION
  Report Type: 
  Country: None (occurrence: None)
  Receive Date: 20090316
  Receipt Date: 20090308
  Transmission Date: 20090719
  Serious: Yes (Other)
  Sender: FDA-Public Use
  Company Number: CHPA2009US06292

PATIENT
  Age: 53 Year
  Sex: Female

DRUGS (2)
  1. NICOTINE [Suspect]
     Indication: SMOKING CESSATION THERAPY
     Dosage: 21 MG DURING DAYTIME, TRANSDERMAL
     Route: 062
     Dates: start: 20090225
  2. NICOTINE [Suspect]

REACTIONS (11)
  - BLADDER OPERATION [None]
  - BLOOD CHOLESTEROL INCREASED [None]
  - CARDIAC PACEMAKER INSERTION [None]
  - CHRONIC OBSTRUCTIVE PULMONARY DISEASE [None]
  - EMPHYSEMA [None]
  - HERNIA REPAIR [None]
  - HYPERTENSION [None]
  - HYSTERECTOMY [None]
  - NERVOUSNESS [None]
  - NEUROMA [None]
  - PAIN IN EXTREMITY [None]
